FAERS Safety Report 7061462-7 (Version None)
Quarter: 2010Q4

REPORT INFORMATION
  Report Type: 
  Country: None (occurrence: None)
  Receive Date: 20101026
  Receipt Date: 20101013
  Transmission Date: 20110411
  Serious: Yes (Disabling)
  Sender: FDA-Public Use
  Company Number: JP-ELI_LILLY_AND_COMPANY-JP201009004316

PATIENT
  Sex: Male

DRUGS (8)
  1. STRATTERA [Suspect]
     Indication: ATTENTION DEFICIT/HYPERACTIVITY DISORDER
     Dosage: 15 MG, DAILY (1/D)
     Route: 048
     Dates: start: 20100721, end: 20100727
  2. STRATTERA [Suspect]
     Dosage: 25 MG, DAILY (1/D)
     Route: 048
     Dates: start: 20100728, end: 20100803
  3. STRATTERA [Suspect]
     Dosage: 40 MG, DAILY (1/D)
     Route: 048
     Dates: start: 20100804, end: 20100810
  4. STRATTERA [Suspect]
     Dosage: 50 MG, DAILY (1/D)
     Route: 048
     Dates: start: 20100811, end: 20100831
  5. STRATTERA [Suspect]
     Dosage: 20 MG, DAILY (1/D)
     Route: 048
     Dates: start: 20100901, end: 20100915
  6. SERENACE [Concomitant]
     Indication: AGITATION
     Dosage: 1.5 MG, DAILY (1/D)
     Route: 048
     Dates: start: 20080501
  7. AKINETON [Concomitant]
     Indication: PROPHYLAXIS
     Dosage: 1 MG, DAILY (1/D)
     Route: 048
     Dates: start: 20080501
  8. DAISAIKOTO [Concomitant]
     Indication: AGITATION
     Dosage: 5 MG, DAILY (1/D)
     Route: 048
     Dates: start: 20091101

REACTIONS (3)
  - ANXIETY [None]
  - DEPRESSION [None]
  - OBSESSIVE THOUGHTS [None]
